FAERS Safety Report 9729717 (Version 2)
Quarter: 2015Q3

REPORT INFORMATION
  Report Type: Spontaneous
  Country: US (occurrence: US)
  Receive Date: 20131204
  Receipt Date: 20150804
  Transmission Date: 20151125
  Serious: No
  Sender: FDA-Public Use
  Company Number: US-GILEAD-2009-0021859

PATIENT
  Age: 89 Year
  Sex: Female
  Weight: 97.52 kg

DRUGS (17)
  1. LASIX [Concomitant]
     Active Substance: FUROSEMIDE
  2. VERAPAMIL [Concomitant]
     Active Substance: VERAPAMIL HYDROCHLORIDE
  3. ALBUTEROL. [Concomitant]
     Active Substance: ALBUTEROL
  4. CATAPRES-TTS 3 PATCH [Concomitant]
  5. VITAMIN B12 [Concomitant]
     Active Substance: CYANOCOBALAMIN
  6. ASPIRIN. [Concomitant]
     Active Substance: ASPIRIN
  7. HUMULIN R [Concomitant]
     Active Substance: INSULIN HUMAN
  8. GEMFIBROZIL. [Concomitant]
     Active Substance: GEMFIBROZIL
  9. COLCHICINE. [Concomitant]
     Active Substance: COLCHICINE
  10. LYRICA [Concomitant]
     Active Substance: PREGABALIN
  11. ADVAIR HFA [Concomitant]
     Active Substance: FLUTICASONE PROPIONATE\SALMETEROL XINAFOATE
  12. NEXIUM [Concomitant]
     Active Substance: ESOMEPRAZOLE MAGNESIUM
  13. LETAIRIS [Suspect]
     Active Substance: AMBRISENTAN
     Indication: PULMONARY ARTERIAL HYPERTENSION
     Route: 048
     Dates: start: 20090227
  14. REVATIO [Concomitant]
     Active Substance: SILDENAFIL CITRATE
  15. ACTONEL [Concomitant]
     Active Substance: RISEDRONATE SODIUM
  16. ALLOPURINOL. [Concomitant]
     Active Substance: ALLOPURINOL
  17. MUTLIVITAMIN [Concomitant]

REACTIONS (1)
  - Swelling [Unknown]
